FAERS Safety Report 16260936 (Version 1)
Quarter: 2019Q2

REPORT INFORMATION
  Report Type: Spontaneous
  Country: GB (occurrence: GB)
  Receive Date: 20190501
  Receipt Date: 20190501
  Transmission Date: 20190711
  Serious: Yes (Hospitalization)
  Sender: FDA-Public Use
  Company Number: GB-TEVA-2019-GB-1043080

PATIENT
  Age: 79 Year
  Sex: Female

DRUGS (10)
  1. CLOPIDOGREL [Concomitant]
     Active Substance: CLOPIDOGREL BISULFATE
     Dosage: 75 MILLIGRAM DAILY;
     Route: 048
  2. METFORMIN [Concomitant]
     Active Substance: METFORMIN HYDROCHLORIDE
     Dosage: 1000 MILLIGRAM DAILY;
  3. HYDROXOCOBALAMIN [Concomitant]
     Active Substance: HYDROXOCOBALAMIN
     Route: 030
  4. FOLIC ACID. [Concomitant]
     Active Substance: FOLIC ACID
     Dosage: 5 MILLIGRAM DAILY;
  5. PARACETAMOL [Concomitant]
     Active Substance: ACETAMINOPHEN
     Dosage: 1-2 FOUR TIMES DAILY
  6. ADIZEM [Concomitant]
     Active Substance: DILTIAZEM HYDROCHLORIDE
     Dosage: 180 MILLIGRAM DAILY;
     Route: 048
  7. NEFOPAM [Suspect]
     Active Substance: NEFOPAM
     Dosage: THREE TIMES DAILY
     Route: 048
     Dates: start: 20190219, end: 20190314
  8. ATORVASTATIN [Concomitant]
     Active Substance: ATORVASTATIN
     Dosage: 40 MILLIGRAM DAILY;
     Route: 048
  9. LISINOPRIL. [Suspect]
     Active Substance: LISINOPRIL
     Dosage: 5 MILLIGRAM DAILY;
     Route: 048
  10. PIOGLITAZONE. [Concomitant]
     Active Substance: PIOGLITAZONE
     Dosage: 30 MILLIGRAM DAILY;
     Route: 048
     Dates: end: 20190315

REACTIONS (3)
  - Orthostatic hypotension [Unknown]
  - Dizziness postural [Recovered/Resolved]
  - Peripheral swelling [Not Recovered/Not Resolved]

NARRATIVE: CASE EVENT DATE: 20190312
